FAERS Safety Report 8349134-X (Version None)
Quarter: 2012Q2

REPORT INFORMATION
  Report Type: 
  Country: None (occurrence: None)
  Receive Date: 20120510
  Receipt Date: 20120504
  Transmission Date: 20120825
  Serious: Yes (Hospitalization)
  Sender: FDA-Public Use
  Company Number: US-BAYER-2010-001602

PATIENT
  Sex: Female
  Weight: 101.13 kg

DRUGS (10)
  1. PREDNISONE TAB [Concomitant]
     Dosage: 10 MG DISPENSED 18 TABS, UNK
     Dates: start: 20051108
  2. FLUCONAZOLE [Concomitant]
     Dosage: 150 MG TABLET /DISPENSED 1 TABLET, UNK
     Dates: start: 20051103
  3. ZMAX [Concomitant]
     Dosage: 60 MG SUSPENSION, UNK
     Dates: start: 20051108
  4. YASMIN [Suspect]
     Indication: PREMENSTRUAL SYNDROME
     Dosage: UNK UNK, QD
     Route: 048
     Dates: start: 20051001, end: 20060101
  5. ALBUTEROL [Concomitant]
     Indication: RHINITIS ALLERGIC
  6. ERY-TAB [Concomitant]
     Dosage: 500 MG DISPENSED 20 TABS, UNK
     Dates: start: 20051103
  7. AMOX TR-K CLV (INTERPRETED AS AMOXICILLIN/CLAVULANIC ACID) [Concomitant]
     Dosage: 875-125 MG/DISPENSED 20 TABS, UNK
     Dates: start: 20051130
  8. SINGULAIR [Concomitant]
     Indication: RHINITIS ALLERGIC
     Dosage: UNK
  9. ALBUTEROL [Concomitant]
     Indication: ASTHMA
     Dosage: UNK
  10. SINGULAIR [Concomitant]
     Indication: ASTHMA

REACTIONS (2)
  - PULMONARY EMBOLISM [None]
  - DEEP VEIN THROMBOSIS [None]
